FAERS Safety Report 17660995 (Version 2)
Quarter: 2020Q2

REPORT INFORMATION
  Report Type: Spontaneous
  Country: US (occurrence: US)
  Receive Date: 20200413
  Receipt Date: 20200428
  Transmission Date: 20200713
  Serious: Yes (Hospitalization)
  Sender: FDA-Public Use
  Company Number: US-SA-2020SA094671

PATIENT
  Age: 63 Year
  Sex: Female

DRUGS (4)
  1. CYCLOBENZAPRIN [Concomitant]
     Active Substance: CYCLOBENZAPRINE
  2. GABAPENTIN. [Concomitant]
     Active Substance: GABAPENTIN
  3. DUPIXENT [Suspect]
     Active Substance: DUPILUMAB
     Indication: ASTHMA
     Dosage: 300 MG, QOW
     Route: 058
     Dates: start: 20191210
  4. NORCO [Concomitant]
     Active Substance: ACETAMINOPHEN\HYDROCODONE BITARTRATE

REACTIONS (3)
  - Knee arthroplasty [Not Recovered/Not Resolved]
  - Product preparation error [Unknown]
  - Product use issue [Unknown]

NARRATIVE: CASE EVENT DATE: 20191210
